FAERS Safety Report 9556680 (Version 1)
Quarter: 2013Q3

REPORT INFORMATION
  Report Type: Spontaneous
  Country: US (occurrence: US)
  Receive Date: 20130926
  Receipt Date: 20130926
  Transmission Date: 20140515
  Serious: No
  Sender: FDA-Public Use
  Company Number: US-PFIZER INC-2013274256

PATIENT
  Age: 83 Year
  Sex: Female

DRUGS (3)
  1. AMLODIPINE BESILATE [Suspect]
     Dosage: 2.5 MG, 1X/DAY
     Dates: end: 2013
  2. WARFARIN [Concomitant]
     Dosage: 6 MG EVERY DAY, BUT 3 MG ON WEDNESDAY
     Dates: start: 2003
  3. METAMUCIL [Concomitant]
     Dosage: UNK

REACTIONS (1)
  - Joint swelling [Recovering/Resolving]
